FAERS Safety Report 17104913 (Version 1)
Quarter: 2019Q4

REPORT INFORMATION
  Report Type: Spontaneous
  Country: US (occurrence: US)
  Receive Date: 20191107
  Receipt Date: 20191107
  Transmission Date: 20200122
  Serious: Yes (Life-Threatening, Other)
  Sender: FDA-Public Use
  Company Number: None

PATIENT
  Age: 84 Year
  Sex: Male
  Weight: 82.55 kg

DRUGS (11)
  1. LISINOPRIL. [Suspect]
     Active Substance: LISINOPRIL
     Indication: HYPERTENSION
     Dosage: ?          QUANTITY:90 DF DOSAGE FORM;?
     Route: 048
     Dates: start: 20190502, end: 20190703
  2. SAW PALMETO [Concomitant]
  3. CARVEDILOL. [Concomitant]
     Active Substance: CARVEDILOL
  4. ASPIRIN. [Concomitant]
     Active Substance: ASPIRIN
  5. TRIPLE FLEX [Concomitant]
  6. CHOLEST OFF [Concomitant]
  7. MELATONIN [Concomitant]
     Active Substance: MELATONIN
  8. SHTP PLUS [Concomitant]
  9. CENTRUM SILVER [Concomitant]
     Active Substance: MINERALS\VITAMINS
  10. FINASTERIDE. [Concomitant]
     Active Substance: FINASTERIDE
  11. GARLIC. [Concomitant]
     Active Substance: GARLIC

REACTIONS (2)
  - Throat tightness [None]
  - Cough [None]

NARRATIVE: CASE EVENT DATE: 20190619
